FAERS Safety Report 7507207 (Version 11)
Quarter: 2014Q1

REPORT INFORMATION
  Report Type: Spontaneous
  Country: US (occurrence: US)
  Receive Date: 20100729
  Receipt Date: 20140226
  Transmission Date: 20141002
  Serious: Yes (Hospitalization, Disabling, Congenital Anomaly, Other)
  Sender: FDA-Public Use
  Company Number: US-PFIZER INC-2010092587

PATIENT
  Sex: Female
  Weight: 4 kg

DRUGS (16)
  1. ZOLOFT [Suspect]
     Indication: ANXIETY
     Dosage: UNK
     Route: 064
     Dates: start: 1997
  2. ZOLOFT [Suspect]
     Indication: DEPRESSION
     Dosage: 100 MG, DAILY
     Route: 064
     Dates: start: 2001, end: 200705
  3. ZOLOFT [Suspect]
     Indication: AFFECTIVE DISORDER
     Dosage: 50 MG, DAILY
     Route: 064
     Dates: start: 2002
  4. ZOLOFT [Suspect]
     Dosage: 100 MG, DAILY
     Route: 064
     Dates: end: 20070801
  5. ZOLOFT [Suspect]
     Dosage: 50 MG, DAILY
     Route: 064
     Dates: start: 20070801, end: 20100114
  6. ORTHO-CEPT 28 [Concomitant]
     Indication: CONTRACEPTION
     Dosage: UNK, AS DIRECTED
     Route: 064
     Dates: start: 199904
  7. PAXIL [Concomitant]
     Indication: DEPRESSION
     Dosage: 20 MG, DAILY
     Route: 064
     Dates: start: 20000119
  8. ULTRA NATAL CARE [Concomitant]
     Dosage: ^90-50^ DAILY, UNK
     Route: 064
     Dates: start: 20001117
  9. LAMISIL [Concomitant]
     Indication: ONYCHOMYCOSIS
     Dosage: 250 MG AS DIRECTED, UNK
     Route: 064
     Dates: start: 20010917
  10. DIFLUCAN [Concomitant]
     Indication: FUNGAL INFECTION
     Dosage: 150 MG AS DIRECTED, UNK
     Route: 064
     Dates: start: 20020205
  11. PHENTERMINE [Concomitant]
     Dosage: 30 MG, UNK
     Route: 064
     Dates: start: 20021108
  12. TYLENOL [Concomitant]
     Indication: PAIN
     Dosage: UNK, AS DIRECTED
     Route: 064
  13. ROBITUSSIN [Concomitant]
     Dosage: UNK
     Route: 064
  14. NYQUIL [Concomitant]
     Dosage: UNK
     Route: 064
  15. DAYQUIL [Concomitant]
     Dosage: UNK
     Route: 064
  16. MOTRIN [Concomitant]
     Dosage: UNK
     Route: 064

REACTIONS (32)
  - Foetal exposure during pregnancy [Unknown]
  - Heart disease congenital [Unknown]
  - Transposition of the great vessels [Unknown]
  - Ventricular septal defect [Unknown]
  - Atrial septal defect [Unknown]
  - Atrial septal defect [Unknown]
  - Patent ductus arteriosus [Recovered/Resolved]
  - Hypoplastic right heart syndrome [Unknown]
  - Left ventricular hypertrophy [Unknown]
  - Pulmonary artery stenosis congenital [Unknown]
  - Cardiomegaly [Unknown]
  - Cyanosis [Unknown]
  - Neonatal tachypnoea [Unknown]
  - Jaundice neonatal [Unknown]
  - Respiratory distress [Unknown]
  - Gastrooesophageal reflux disease [Unknown]
  - Laevocardia [Unknown]
  - Sinus arrhythmia [Unknown]
  - Cardiac failure congestive [Unknown]
  - Pulmonary valve disease [Unknown]
  - Intracardiac thrombus [Unknown]
  - Pulmonary congestion [Unknown]
  - Pulmonary hypertension [Unknown]
  - Failure to thrive [Unknown]
  - Feeding disorder neonatal [Unknown]
  - Hypoxia [Unknown]
  - Pneumomediastinum [Unknown]
  - Atelectasis [Recovered/Resolved]
  - Dysphagia [Recovering/Resolving]
  - Anaphylactic reaction [Unknown]
  - Thrombosis [Unknown]
  - Vesicoureteric reflux [Unknown]
